FAERS Safety Report 16399272 (Version 4)
Quarter: 2019Q2

REPORT INFORMATION
  Report Type: Report from Study
  Country: US (occurrence: US)
  Receive Date: 20190606
  Receipt Date: 20190619
  Transmission Date: 20190711
  Serious: Yes (Hospitalization, Other)
  Sender: FDA-Public Use
  Company Number: US-ALEXION PHARMACEUTICALS INC.-A201908331

PATIENT
  Sex: Female

DRUGS (2)
  1. ALBUTEROL                          /00139501/ [Concomitant]
     Active Substance: ALBUTEROL
     Indication: PRODUCT USED FOR UNKNOWN INDICATION
     Dosage: UNK
     Route: 065
  2. SOLIRIS [Suspect]
     Active Substance: ECULIZUMAB
     Indication: PRODUCT USED FOR UNKNOWN INDICATION
     Dosage: UNK
     Route: 065

REACTIONS (16)
  - Transfusion [Recovering/Resolving]
  - Blood lactate dehydrogenase increased [Unknown]
  - Dysphagia [Recovering/Resolving]
  - Abdominal pain upper [Recovering/Resolving]
  - Chromaturia [Unknown]
  - Dehydration [Unknown]
  - Productive cough [Unknown]
  - Decreased appetite [Unknown]
  - Pyrexia [Unknown]
  - Sluggishness [Recovering/Resolving]
  - Malaise [Unknown]
  - Fluid intake reduced [Unknown]
  - Musculoskeletal stiffness [Unknown]
  - Dyspnoea [Recovering/Resolving]
  - Photosensitivity reaction [Recovering/Resolving]
  - Nausea [Unknown]

NARRATIVE: CASE EVENT DATE: 20190525
